FAERS Safety Report 13845094 (Version 1)
Quarter: 2017Q3

REPORT INFORMATION
  Report Type: Spontaneous
  Country: MX (occurrence: MX)
  Receive Date: 20170808
  Receipt Date: 20170808
  Transmission Date: 20171127
  Serious: Yes (Other)
  Sender: FDA-Public Use
  Company Number: MX-TEVA-792938ISR

PATIENT
  Age: 74 Year
  Sex: Male
  Weight: 72 kg

DRUGS (4)
  1. BLODIVIT [Concomitant]
     Route: 065
  2. ASPIRINA PROTECT [Concomitant]
     Active Substance: ASPIRIN
     Route: 065
  3. TRADOL [Concomitant]
     Active Substance: TRAMADOL HYDROCHLORIDE
     Route: 065
  4. AZILECT [Suspect]
     Active Substance: RASAGILINE MESYLATE
     Indication: PARKINSON^S DISEASE
     Dosage: 1 MILLIGRAM DAILY;
     Route: 048
     Dates: start: 20140521

REACTIONS (3)
  - Arteriosclerosis [Recovered/Resolved]
  - Spinal pain [Not Recovered/Not Resolved]
  - Arterial catheterisation [Recovered/Resolved]

NARRATIVE: CASE EVENT DATE: 201701
